FAERS Safety Report 13773961 (Version 1)
Quarter: 2017Q3

REPORT INFORMATION
  Report Type: Spontaneous
  Country: US (occurrence: US)
  Receive Date: 20170721
  Receipt Date: 20170721
  Transmission Date: 20171127
  Serious: Yes (Other)
  Sender: FDA-Public Use
  Company Number: US-GLAXOSMITHKLINE-US2017109516

PATIENT
  Age: 53 Year
  Sex: Female

DRUGS (4)
  1. FLONASE SENSIMIST ALLERGY RELIEF [Suspect]
     Active Substance: FLUTICASONE FUROATE
     Indication: MENIERE^S DISEASE
     Dosage: UNK
     Dates: start: 201706
  2. FLONASE [Suspect]
     Active Substance: FLUTICASONE PROPIONATE
     Indication: MENIERE^S DISEASE
     Dosage: UNK UNK, U
  3. FLONASE [Suspect]
     Active Substance: FLUTICASONE PROPIONATE
     Indication: TINNITUS
  4. FLONASE SENSIMIST ALLERGY RELIEF [Suspect]
     Active Substance: FLUTICASONE FUROATE
     Indication: TINNITUS

REACTIONS (5)
  - Drug ineffective for unapproved indication [Unknown]
  - Off label use [Unknown]
  - Meniere^s disease [Not Recovered/Not Resolved]
  - Drug effective for unapproved indication [Unknown]
  - Tinnitus [Not Recovered/Not Resolved]
